FAERS Safety Report 7096090-0 (Version None)
Quarter: 2010Q4

REPORT INFORMATION
  Report Type: 
  Country: None (occurrence: None)
  Receive Date: 20101111
  Receipt Date: 20101102
  Transmission Date: 20110411
  Serious: Yes (Hospitalization, Disabling)
  Sender: FDA-Public Use
  Company Number: US-ROCHE-727203

PATIENT
  Age: 67 Year
  Sex: Male
  Weight: 73 kg

DRUGS (3)
  1. AVASTIN [Suspect]
     Dosage: FREQ: Q3W: TOTAL DOSE: 1092MG
     Route: 017
     Dates: start: 20100903, end: 20100909
  2. TAXOL [Suspect]
     Route: 065
     Dates: start: 20100903, end: 20100909
  3. CARBOPLATIN [Suspect]
     Dosage: DOSE REPORTED AS : 6 ANC =553 MG
     Route: 065
     Dates: start: 20100903, end: 20100909

REACTIONS (2)
  - COLOUR BLINDNESS ACQUIRED [None]
  - SCOTOMA [None]
